FAERS Safety Report 19846401 (Version 1)
Quarter: 2021Q3

REPORT INFORMATION
  Report Type: Spontaneous
  Country: US (occurrence: US)
  Receive Date: 20210917
  Receipt Date: 20210917
  Transmission Date: 20211014
  Serious: Yes (Disabling)
  Sender: FDA-Public Use
  Company Number: None

PATIENT
  Age: 34 Year
  Sex: Female

DRUGS (8)
  1. ZINC. [Concomitant]
     Active Substance: ZINC
  2. FISH OIL [Concomitant]
     Active Substance: FISH OIL
  3. WOMEN^S MVI [Concomitant]
  4. REGEN?COV [Suspect]
     Active Substance: CASIRIVIMAB\IMDEVIMAB
     Indication: SARS-COV-2 TEST POSITIVE
     Route: 042
  5. UBRELVY [Concomitant]
     Active Substance: UBROGEPANT
  6. VITAMIN C [Concomitant]
     Active Substance: ASCORBIC ACID
  7. HCTZ [Concomitant]
     Active Substance: HYDROCHLOROTHIAZIDE
  8. NORVASC [Concomitant]
     Active Substance: AMLODIPINE BESYLATE

REACTIONS (6)
  - Swelling [None]
  - Hypersensitivity [None]
  - Dizziness [None]
  - Infusion related reaction [None]
  - Erythema [None]
  - Urticaria [None]

NARRATIVE: CASE EVENT DATE: 20210826
